FAERS Safety Report 6788711-4 (Version None)
Quarter: 2010Q2

REPORT INFORMATION
  Report Type: 
  Country: None (occurrence: None)
  Receive Date: 20100623
  Receipt Date: 20080519
  Transmission Date: 20101027
  Serious: Yes (Other)
  Sender: FDA-Public Use
  Company Number: US-PFIZER INC-2008030614

PATIENT
  Sex: Female
  Weight: 68.181 kg

DRUGS (7)
  1. SUTENT [Suspect]
     Indication: RENAL CELL CARCINOMA
     Route: 048
     Dates: start: 20080103
  2. SUTENT [Suspect]
     Route: 048
     Dates: start: 20080101
  3. LEVAQUIN [Suspect]
     Indication: SINUSITIS
     Route: 048
     Dates: start: 20080405
  4. LEVAQUIN [Suspect]
     Indication: URINARY TRACT INFECTION
  5. SYNTHROID [Concomitant]
  6. TRIAMTERENE AND HYDROCHLOROTHIAZIDE [Concomitant]
  7. XANAX [Concomitant]

REACTIONS (13)
  - ABDOMINAL DISCOMFORT [None]
  - ABDOMINAL SYMPTOM [None]
  - AGEUSIA [None]
  - BLOOD PRESSURE INCREASED [None]
  - CONSTIPATION [None]
  - DYSGEUSIA [None]
  - EPISTAXIS [None]
  - FATIGUE [None]
  - HAIR COLOUR CHANGES [None]
  - HEADACHE [None]
  - LACRIMATION INCREASED [None]
  - OESOPHAGITIS [None]
  - STOMATITIS [None]
